FAERS Safety Report 4609988-7 (Version None)
Quarter: 2005Q1

REPORT INFORMATION
  Report Type: 
  Country: None (occurrence: None)
  Receive Date: 20050315
  Receipt Date: 20050302
  Transmission Date: 20050727
  Serious: Yes (Hospitalization, Other)
  Sender: FDA-Public Use
  Company Number: HQWYE764702MAR05

PATIENT
  Age: 60 Year
  Sex: Male

DRUGS (7)
  1. CORDARONE [Suspect]
     Indication: ATRIAL FIBRILLATION
     Dosage: SEE IMAGE
     Route: 048
     Dates: start: 19960615, end: 20040101
  2. CORDARONE [Suspect]
     Indication: ATRIAL FIBRILLATION
     Dosage: SEE IMAGE
     Route: 048
     Dates: start: 20040101
  3. LOGIMAX (FELODIPINE/METOPROLOL SUCCINATE) [Suspect]
     Indication: HYPERTENSION
     Dosage: 5 MG 1X PER 1 DAY
     Route: 048
     Dates: start: 20000915, end: 20040328
  4. PREVISCAN (FLUINDIONE) [Concomitant]
  5. CAPTOLANE (CAPTOPRIL) [Concomitant]
  6. CAPTEA (CAPTOPRIL/HYDROCHLOROTHIAZIDE) [Concomitant]
  7. PRAVASTATIN [Concomitant]

REACTIONS (6)
  - DRUG INTERACTION [None]
  - EYE DISORDER [None]
  - MALAISE [None]
  - SYNCOPE VASOVAGAL [None]
  - TREMOR [None]
  - VENTRICULAR EXTRASYSTOLES [None]
